FAERS Safety Report 8734076 (Version 2)
Quarter: 2014Q3

REPORT INFORMATION
  Report Type: Report from Study
  Country: DE (occurrence: NL)
  Receive Date: 20120821
  Receipt Date: 20140828
  Transmission Date: 20150326
  Serious: Yes (Death)
  Sender: FDA-Public Use
  Company Number: DE-ACTELION-A-US2012-70221

PATIENT
  Age: 80 Year
  Sex: Female

DRUGS (1)
  1. VENTAVIS [Suspect]
     Active Substance: ILOPROST
     Indication: PULMONARY ARTERIAL HYPERTENSION
     Dosage: 5 UG, X4-6/DAY
     Route: 055
     Dates: start: 20091110, end: 20120719

REACTIONS (2)
  - Pulmonary arterial hypertension [Fatal]
  - Inflammatory pain [Unknown]

NARRATIVE: CASE EVENT DATE: 20120719
